FAERS Safety Report 11934761 (Version 3)
Quarter: 2016Q4

REPORT INFORMATION
  Report Type: Spontaneous
  Country: JP (occurrence: JP)
  Receive Date: 20160121
  Receipt Date: 20161006
  Transmission Date: 20170206
  Serious: Yes (Other)
  Sender: FDA-Public Use
  Company Number: JP-NOVOPROD-477127

PATIENT
  Age: 5 Year
  Sex: Male
  Weight: 20 kg

DRUGS (5)
  1. NORDITROPIN [Suspect]
     Active Substance: SOMATROPIN
     Dosage: 0.5 MG, QD (0.19MG/KG/WEEK)
     Route: 058
     Dates: start: 20150619, end: 20151016
  2. CORTRIL [Concomitant]
     Active Substance: HYDROCORTISONE
     Indication: HYPOPITUITARISM
     Dosage: 7 MG, QD
     Route: 048
     Dates: start: 201304
  3. NORDITROPIN [Suspect]
     Active Substance: SOMATROPIN
     Dosage: 0.45 MG, QD (0.17MG/KG/WEEK)
     Route: 058
     Dates: start: 20150507
  4. NORDITROPIN [Suspect]
     Active Substance: SOMATROPIN
     Indication: GROWTH HORMONE DEFICIENCY
     Dosage: 0.4 MG, QD
     Route: 058
     Dates: start: 20150421
  5. THYRADIN S [Concomitant]
     Active Substance: LEVOTHYROXINE SODIUM
     Indication: HYPOPITUITARISM
     Dosage: 55 ?G, QD
     Route: 048
     Dates: start: 20131202

REACTIONS (1)
  - Neoplasm progression [Not Recovered/Not Resolved]

NARRATIVE: CASE EVENT DATE: 20150825
